FAERS Safety Report 4559578-X (Version None)
Quarter: 2005Q1

REPORT INFORMATION
  Report Type: 
  Country: None (occurrence: None)
  Receive Date: 20050119
  Receipt Date: 20050110
  Transmission Date: 20050727
  Serious: Yes (Other)
  Sender: FDA-Public Use
  Company Number: 2005010789

PATIENT
  Weight: 60 kg

DRUGS (1)
  1. CLINDA PHOSPHATE [Suspect]
     Indication: SINUSITIS
     Dosage: 1200 MG (600 MG, TWICE DAILY), ORAL
     Route: 048
     Dates: start: 20041201

REACTIONS (1)
  - CREATININE RENAL CLEARANCE DECREASED [None]
